FAERS Safety Report 23290812 (Version 4)
Quarter: 2024Q1

REPORT INFORMATION
  Report Type: Report from Study
  Country: GB (occurrence: GB)
  Receive Date: 20231213
  Receipt Date: 20240313
  Transmission Date: 20240409
  Serious: Yes (Other)
  Sender: FDA-Public Use
  Company Number: GB-002147023-NVSC2023GB176033

PATIENT
  Sex: Female

DRUGS (2)
  1. KESIMPTA [Suspect]
     Active Substance: OFATUMUMAB
     Indication: Relapsing-remitting multiple sclerosis
     Dosage: 20 MG, OTHER, STARTING DOSES; ONCE A WEEK FOR 3 WEEKS, THEN SKIP A WEEK AND THEN HAVE ONE MORE DOSE
     Route: 058
     Dates: start: 20230802
  2. KESIMPTA [Suspect]
     Active Substance: OFATUMUMAB
     Dosage: 20 MG, QMO
     Route: 058

REACTIONS (7)
  - Lower respiratory tract infection [Unknown]
  - Multiple sclerosis relapse [Not Recovered/Not Resolved]
  - Mobility decreased [Not Recovered/Not Resolved]
  - Tinea manuum [Not Recovered/Not Resolved]
  - Oral herpes [Recovering/Resolving]
  - Headache [Recovered/Resolved]
  - Fungal foot infection [Not Recovered/Not Resolved]

NARRATIVE: CASE EVENT DATE: 20231205
